FAERS Safety Report 7320111-0 (Version None)
Quarter: 2011Q1

REPORT INFORMATION
  Report Type: 
  Country: None (occurrence: None)
  Receive Date: 20110223
  Receipt Date: 20110223
  Transmission Date: 20110831
  Serious: Yes (Other)
  Sender: FDA-Public Use
  Company Number: None

PATIENT
  Age: 58 Year
  Sex: Female
  Weight: 61.6892 kg

DRUGS (1)
  1. ANASTROZOLE [Suspect]
     Indication: BREAST CANCER
     Dosage: 1 TABLET DAILY 1MG USED FOR 2 MONTHS
     Dates: start: 20100901, end: 20101101

REACTIONS (6)
  - ARTHRALGIA [None]
  - CONSTIPATION [None]
  - WEIGHT INCREASED [None]
  - HOT FLUSH [None]
  - PRODUCT SUBSTITUTION ISSUE [None]
  - HYPERHIDROSIS [None]
